FAERS Safety Report 16498305 (Version 2)
Quarter: 2020Q3

REPORT INFORMATION
  Report Type: Report from Study
  Country: KR (occurrence: KR)
  Receive Date: 20190629
  Receipt Date: 20190812
  Transmission Date: 20201105
  Serious: Yes (Hospitalization)
  Sender: FDA-Public Use
  Company Number: KR-ROCHE-2342284

PATIENT
  Age: 73 Year
  Sex: Male
  Weight: 80 kg

DRUGS (20)
  1. LEGALON [Concomitant]
     Active Substance: DIETARY SUPPLEMENT\HERBALS\MILK THISTLE
     Indication: PREMEDICATION
     Dosage: 1 CAPSULE
     Route: 048
     Dates: start: 20181016
  2. LASIX [Concomitant]
     Active Substance: FUROSEMIDE
     Indication: PREMEDICATION
     Route: 048
     Dates: start: 20181127, end: 20181220
  3. ARICEPT [Concomitant]
     Active Substance: DONEPEZIL HYDROCHLORIDE
     Indication: DEMENTIA
     Route: 048
     Dates: start: 20180517
  4. ALECTINIB. [Suspect]
     Active Substance: ALECTINIB
     Indication: NON-SMALL CELL LUNG CANCER METASTATIC
     Route: 048
     Dates: start: 20180410, end: 20181014
  5. OPALMON [Concomitant]
     Active Substance: LIMAPROST
     Indication: COMPRESSION FRACTURE
     Route: 048
     Dates: start: 20180730
  6. MOTILITONE [Concomitant]
     Active Substance: HERBALS
     Indication: GASTRIC ULCER
     Route: 048
     Dates: start: 20180911
  7. ULCERMIN [SUCRALFATE] [Concomitant]
     Indication: PREMEDICATION
     Route: 048
     Dates: start: 20181022
  8. ALECTINIB. [Suspect]
     Active Substance: ALECTINIB
     Route: 048
     Dates: start: 20181225, end: 20190219
  9. TWYNSTA [Concomitant]
     Active Substance: AMLODIPINE BESYLATE\TELMISARTAN
     Indication: HYPERTENSION
     Dosage: 0.5 TABLET
     Route: 048
     Dates: start: 20160824
  10. ALECTINIB. [Suspect]
     Active Substance: ALECTINIB
     Route: 048
     Dates: start: 20181120, end: 20181218
  11. DUMIROX [Concomitant]
     Active Substance: FLUVOXAMINE MALEATE
     Indication: DEMENTIA
     Route: 048
     Dates: start: 20180911
  12. FORSTEO [Concomitant]
     Active Substance: TERIPARATIDE
     Indication: COMPRESSION FRACTURE
     Route: 058
     Dates: start: 20180912
  13. PANTOLOC [PANTOPRAZOLE] [Concomitant]
     Active Substance: PANTOPRAZOLE SODIUM
     Indication: PREMEDICATION
     Route: 048
     Dates: start: 20181020, end: 20181123
  14. ACUPAN [Concomitant]
     Active Substance: NEFOPAM HYDROCHLORIDE
     Indication: COMPRESSION FRACTURE
     Route: 042
     Dates: start: 20180516, end: 20180520
  15. NOLTEC [Concomitant]
     Indication: GASTRIC ULCER
     Route: 048
     Dates: start: 20180911
  16. URUSA [Concomitant]
     Active Substance: URSODIOL
     Indication: PREMEDICATION
     Route: 048
     Dates: start: 20181016
  17. NORSPAN [Concomitant]
     Active Substance: BUPRENORPHINE
     Indication: COMPRESSION FRACTURE
     Dosage: 1 PATCH
     Route: 061
     Dates: start: 20181119, end: 20181125
  18. PENIRAMIN [Concomitant]
     Indication: PREMEDICATION
     Route: 042
     Dates: start: 20181217, end: 20181218
  19. ALECTINIB. [Suspect]
     Active Substance: ALECTINIB
     Route: 048
     Dates: start: 20190430
  20. ALDACTONE [Concomitant]
     Active Substance: SPIRONOLACTONE
     Indication: PREMEDICATION
     Route: 048
     Dates: start: 20181127, end: 20181220

REACTIONS (3)
  - Alanine aminotransferase increased [Recovering/Resolving]
  - Anaemia [Recovered/Resolved]
  - Blood bilirubin increased [Recovered/Resolved]

NARRATIVE: CASE EVENT DATE: 20180909
